FAERS Safety Report 17999087 (Version 1)
Quarter: 2020Q3

REPORT INFORMATION
  Report Type: Spontaneous
  Country: US (occurrence: US)
  Receive Date: 20200708
  Receipt Date: 20200708
  Transmission Date: 20201103
  Serious: No
  Sender: FDA-Public Use
  Company Number: None

PATIENT
  Age: 17 Year
  Sex: Male
  Weight: 75.6 kg

DRUGS (1)
  1. METHYLPHENIDATE 54 MG ER [Suspect]
     Active Substance: METHYLPHENIDATE
     Indication: ATTENTION DEFICIT HYPERACTIVITY DISORDER
     Dosage: ?          QUANTITY:1 TABLET(S);?
     Route: 048

REACTIONS (5)
  - Product substitution issue [None]
  - Abnormal behaviour [None]
  - Disturbance in attention [None]
  - Irritability [None]
  - Anger [None]

NARRATIVE: CASE EVENT DATE: 20200203
